FAERS Safety Report 7487173-1 (Version None)
Quarter: 2011Q2

REPORT INFORMATION
  Report Type: 
  Country: None (occurrence: None)
  Receive Date: 20110510
  Receipt Date: 20110502
  Transmission Date: 20111010
  Serious: Yes (Other)
  Sender: FDA-Public Use
  Company Number: 1000020161

PATIENT
  Age: 76 Year
  Sex: Male

DRUGS (9)
  1. NAMENDA [Suspect]
     Indication: COGNITIVE DISORDER
     Dosage: 5 MG (5 MG,1 IN 1 D), ORAL
     Route: 048
     Dates: start: 20110411, end: 20110101
  2. ARICEPT [Concomitant]
  3. LIPITOR [Concomitant]
  4. NAMENDA [Suspect]
     Indication: COGNITIVE DISORDER
     Dosage: 5 MG IN AM, 10 MG IN PM (1 IN 1 D),ORAL
     Route: 048
     Dates: start: 20110404, end: 20110410
  5. OXAPROZIN [Concomitant]
  6. VITAMINS NOS (VITAMINS NOSE) [Concomitant]
  7. NAMENDA [Suspect]
     Indication: COGNITIVE DISORDER
     Dosage: 5 MG (5 MG,1 IN 1 D), ORAL
     Route: 048
     Dates: start: 20110321, end: 20110327
  8. MINERALS NOS (MINERALS NOS) [Concomitant]
  9. SINGULAIR [Concomitant]

REACTIONS (4)
  - ALTERED STATE OF CONSCIOUSNESS [None]
  - IMPAIRED DRIVING ABILITY [None]
  - ROAD TRAFFIC ACCIDENT [None]
  - HALLUCINATION, VISUAL [None]
